FAERS Safety Report 8416823-8 (Version None)
Quarter: 2012Q2

REPORT INFORMATION
  Report Type: 
  Country: None (occurrence: None)
  Receive Date: 20120530
  Receipt Date: 20120517
  Transmission Date: 20120825
  Serious: Yes (Disabling)
  Sender: FDA-Public Use
  Company Number: WAES 1205USA03954

PATIENT
  Age: 76 Year
  Sex: Female

DRUGS (11)
  1. ZOLPIDEM [Concomitant]
  2. ALPRAZOLAM [Concomitant]
  3. ISOSORBIDE MONONITRATE [Concomitant]
  4. MERISLON [Concomitant]
  5. NORVASC [Concomitant]
  6. CIBENOL [Concomitant]
  7. PURSENNID (SENNOSIDES) [Concomitant]
  8. INDERAL [Concomitant]
  9. JANUVIA [Suspect]
     Indication: TYPE 2 DIABETES MELLITUS
     Dosage: 50 MG/DAILY, PO; 100 MG/DAILY
     Route: 048
     Dates: start: 20110805, end: 20110817
  10. JANUVIA [Suspect]
     Indication: TYPE 2 DIABETES MELLITUS
     Dosage: 50 MG/DAILY, PO; 100 MG/DAILY
     Route: 048
     Dates: start: 20110430, end: 20110804
  11. MICARDIS [Concomitant]

REACTIONS (2)
  - BLOOD PRESSURE DECREASED [None]
  - CEREBRAL INFARCTION [None]
